FAERS Safety Report 18971271 (Version 1)
Quarter: 2021Q1

REPORT INFORMATION
  Report Type: Spontaneous
  Country: FR (occurrence: FR)
  Receive Date: 20210305
  Receipt Date: 20210305
  Transmission Date: 20210420
  Serious: Yes (Other)
  Sender: FDA-Public Use
  Company Number: FR-SUN PHARMACEUTICAL INDUSTRIES LTD-2021RR-284316

PATIENT
  Age: 71 Year
  Sex: Female
  Weight: 45 kg

DRUGS (16)
  1. PREDNISOLONE. [Suspect]
     Active Substance: PREDNISOLONE
     Indication: B-CELL LYMPHOMA
     Dosage: 360 MILLIGRAM, DAILY
     Route: 048
     Dates: start: 20201211
  2. DOXORUBICINE [Suspect]
     Active Substance: DOXORUBICIN
     Indication: B-CELL LYMPHOMA
     Dosage: 70 MILLIGRAM, 3/WEEK
     Route: 042
     Dates: start: 20201216
  3. RETACRIT [EPOETIN ZETA] [Suspect]
     Active Substance: ERYTHROPOIETIN
     Indication: ANAEMIA
     Dosage: 1 DOSAGE FORM, WEEKLY
     Route: 058
     Dates: start: 20201218
  4. METHYLPREDNISOLONE. [Suspect]
     Active Substance: METHYLPREDNISOLONE
     Indication: B-CELL LYMPHOMA
     Dosage: 40 MILLIGRAM, IN TOTAL
     Route: 037
     Dates: start: 20201216, end: 20201216
  5. METHOTREXATE. [Suspect]
     Active Substance: METHOTREXATE
     Dosage: 2090 MILLIGRAM, 3/WEEK
     Route: 042
     Dates: start: 20210106
  6. VINCRISTINE (SULFATE DE) [Suspect]
     Active Substance: VINCRISTINE SULFATE
     Indication: B-CELL LYMPHOMA
     Dosage: 2 MILLIGRAM, 3/WEEK
     Route: 042
     Dates: start: 20201211
  7. ALLOPURINOL. [Suspect]
     Active Substance: ALLOPURINOL
     Indication: GOUT
     Dosage: 300 MILLIGRAM, DAILY
     Route: 048
     Dates: start: 20201203
  8. CYTARABINE. [Suspect]
     Active Substance: CYTARABINE
     Indication: B-CELL LYMPHOMA
     Dosage: 30 MILLIGRAM, IN TOTAL
     Route: 037
     Dates: start: 20201216, end: 20201216
  9. RITUXIMAB ((MAMMIFERE/HAMSTER/CELLULES CHO)) [Suspect]
     Active Substance: RITUXIMAB
     Indication: PRIMARY MEDIASTINAL LARGE B-CELL LYMPHOMA
     Dosage: 500 MILLIGRAM, 3/WEEK
     Route: 042
     Dates: start: 20201214
  10. LAROXYL 40 MG/ML, SOLUTION BUVABLE [Suspect]
     Active Substance: AMITRIPTYLINE HYDROCHLORIDE
     Indication: OCCIPITAL NEURALGIA
     Dosage: 10 GTT DROPS, DAILY
     Route: 048
  11. WELLVONE 750 MG/5 ML, SUSPENSION BUVABLE EN SACHET?DOSE [Suspect]
     Active Substance: ATOVAQUONE
     Indication: ANTIFUNGAL PROPHYLAXIS
     Dosage: 1500 MILLIGRAM, DAILY
     Route: 048
  12. VALACYCLOVIR [Suspect]
     Active Substance: VALACYCLOVIR HYDROCHLORIDE
     Indication: ANTIVIRAL PROPHYLAXIS
     Dosage: 1000 MILLIGRAM, DAILY
     Route: 048
  13. METHOTREXATE. [Suspect]
     Active Substance: METHOTREXATE
     Indication: B-CELL LYMPHOMA
     Dosage: 15 MILLIGRAM, IN TOTAL
     Route: 037
     Dates: start: 20201216, end: 20201216
  14. CYCLOPHOSPHAMIDE. [Suspect]
     Active Substance: CYCLOPHOSPHAMIDE
     Indication: B-CELL LYMPHOMA
     Dosage: 1070 MILLIGRAM, 3/WEEK
     Route: 042
     Dates: start: 20201211
  15. ZOPHREN [Suspect]
     Active Substance: ONDANSETRON
     Indication: NAUSEA
     Dosage: 4 DOSAGE FORM, CYCLICAL
     Route: 048
     Dates: start: 20201211
  16. ZARZIO [Suspect]
     Active Substance: FILGRASTIM
     Indication: PRODUCT USED FOR UNKNOWN INDICATION
     Dosage: 5 DOSAGE FORM, CYCLICAL
     Route: 058
     Dates: start: 20201216

REACTIONS (1)
  - Cerebellar stroke [Not Recovered/Not Resolved]

NARRATIVE: CASE EVENT DATE: 20210128
